FAERS Safety Report 6965473-9 (Version None)
Quarter: 2010Q3

REPORT INFORMATION
  Report Type: 
  Country: None (occurrence: None)
  Receive Date: 20100903
  Receipt Date: 20100901
  Transmission Date: 20110219
  Serious: Yes (Hospitalization)
  Sender: FDA-Public Use
  Company Number: B0671082A

PATIENT
  Sex: Female
  Weight: 69 kg

DRUGS (4)
  1. ARIXTRA [Suspect]
     Indication: PHLEBITIS
     Dosage: 7.5MG TWICE PER DAY
     Route: 058
     Dates: start: 20100224, end: 20100412
  2. VANCOMYCIN HCL [Concomitant]
     Indication: MEDIASTINITIS
     Route: 042
     Dates: start: 20100205, end: 20100429
  3. NEXIUM [Concomitant]
     Dosage: 40MG PER DAY
     Route: 048
     Dates: start: 20100101, end: 20100429
  4. FLAGYL [Concomitant]
     Indication: CLOSTRIDIUM DIFFICILE COLITIS
     Route: 048
     Dates: start: 20100309, end: 20100325

REACTIONS (5)
  - HAEMATOMA [None]
  - INCORRECT DRUG ADMINISTRATION DURATION [None]
  - NORMOCHROMIC NORMOCYTIC ANAEMIA [None]
  - OVERDOSE [None]
  - THROMBOCYTOPENIA [None]
